FAERS Safety Report 8186731-9 (Version None)
Quarter: 2012Q1

REPORT INFORMATION
  Report Type: 
  Country: None (occurrence: None)
  Receive Date: 20120213
  Receipt Date: 20111108
  Transmission Date: 20120608
  Serious: No
  Sender: FDA-Public Use
  Company Number: 1000025296

PATIENT
  Sex: Female

DRUGS (8)
  1. SAVELLA [Suspect]
     Indication: FIBROMYALGIA
     Dosage: 12.5 MG (12.5 MG,1 IN 1 D),ORAL ;12.5 MG BID (12.5 MG,2 IN 1 D),ORAL
     Route: 048
     Dates: start: 20111001, end: 20111001
  2. SAVELLA [Suspect]
     Indication: FIBROMYALGIA
     Dosage: 12.5 MG (12.5 MG,1 IN 1 D),ORAL ;12.5 MG BID (12.5 MG,2 IN 1 D),ORAL
     Route: 048
     Dates: start: 20111001, end: 20111001
  3. RESTASIS (CICLOSPORIN) (CICLOSPORIN) [Concomitant]
  4. XANAX [Concomitant]
  5. MAGNESIUM (MAGNESIUM) (MAGNESIUM) [Concomitant]
  6. SAVELLA [Suspect]
     Indication: FIBROMYALGIA
     Dosage: 25 MG BID (25 MG,2 IN 1 D),ORAL
     Route: 048
     Dates: start: 20111001
  7. FISH OIL (FISH OIL) (FISH OIL) [Concomitant]
  8. AMITRIPTYLINE (AMITRIPTYLINE) (AMITRIPTYLINE) [Concomitant]

REACTIONS (1)
  - VISION BLURRED [None]
